FAERS Safety Report 22176292 (Version 5)
Quarter: 2023Q4

REPORT INFORMATION
  Report Type: Report from Study
  Country: DE (occurrence: DE)
  Receive Date: 20230405
  Receipt Date: 20231026
  Transmission Date: 20240109
  Serious: Yes (Hospitalization)
  Sender: FDA-Public Use
  Company Number: DE-002147023-NVSC2023DE074221

PATIENT
  Age: 26 Year
  Sex: Male
  Weight: 78 kg

DRUGS (6)
  1. ILARIS [Suspect]
     Active Substance: CANAKINUMAB
     Indication: Familial mediterranean fever
     Dosage: 150 MG
     Route: 058
     Dates: start: 20220203
  2. ILARIS [Suspect]
     Active Substance: CANAKINUMAB
     Dosage: 150 MG
     Route: 058
     Dates: start: 20220630
  3. ILARIS [Suspect]
     Active Substance: CANAKINUMAB
     Dosage: 150 MG (LATEST ILARIS APPLICATION)
     Route: 058
     Dates: start: 20230112
  4. ILARIS [Suspect]
     Active Substance: CANAKINUMAB
     Dosage: 150 MG, QMO
     Route: 058
     Dates: start: 20230212
  5. ILARIS [Suspect]
     Active Substance: CANAKINUMAB
     Dosage: UNK
     Route: 065
     Dates: start: 20230823
  6. CEFUROXIME [Concomitant]
     Active Substance: CEFUROXIME
     Indication: Product used for unknown indication
     Dosage: 250 MG (1-0-1)
     Route: 065
     Dates: start: 20230824, end: 20230831

REACTIONS (4)
  - Hidradenitis [Recovered/Resolved]
  - Subcutaneous abscess [Recovered/Resolved]
  - Skin disorder [Recovered/Resolved]
  - Subcutaneous abscess [Recovering/Resolving]

NARRATIVE: CASE EVENT DATE: 20220728
